FAERS Safety Report 7565005-0 (Version None)
Quarter: 2011Q2

REPORT INFORMATION
  Report Type: 
  Country: None (occurrence: None)
  Receive Date: 20110622
  Receipt Date: 20110425
  Transmission Date: 20111010
  Serious: Yes (Death)
  Sender: FDA-Public Use
  Company Number: US-MYLANLABS-2011S1006112

PATIENT
  Age: 46 Year
  Sex: Male
  Weight: 70.31 kg

DRUGS (1)
  1. CLOZAPINE [Suspect]

REACTIONS (1)
  - RENAL FAILURE [None]
